FAERS Safety Report 20430486 (Version 1)
Quarter: 2022Q1

REPORT INFORMATION
  Report Type: Report from Study
  Country: BE (occurrence: BE)
  Receive Date: 20220204
  Receipt Date: 20220204
  Transmission Date: 20220424
  Serious: Yes (Hospitalization)
  Sender: FDA-Public Use
  Company Number: BE-SERVIER-S20009252

PATIENT

DRUGS (7)
  1. PEGASPARGASE [Suspect]
     Active Substance: PEGASPARGASE
     Indication: Acute lymphocytic leukaemia
     Dosage: 2379 IU, UNK
     Route: 065
     Dates: start: 20200827, end: 20200827
  2. DAUNORUBICIN HYDROCHLORIDE [Suspect]
     Active Substance: DAUNORUBICIN HYDROCHLORIDE
     Indication: B precursor type acute leukaemia
     Dosage: 71.36 MG, UNK
     Route: 065
     Dates: start: 20200824, end: 20200907
  3. PREDNISOLONE SODIUM PHOSPHATE [Suspect]
     Active Substance: PREDNISOLONE SODIUM PHOSPHATE
     Indication: B precursor type acute leukaemia
     Dosage: 100 MG, UNK
     Route: 048
     Dates: start: 20200824, end: 20200909
  4. VINCRISTINE SULFATE [Suspect]
     Active Substance: VINCRISTINE SULFATE
     Indication: B precursor type acute leukaemia
     Dosage: 2 MG, UNK
     Route: 065
     Dates: start: 20200824, end: 20200907
  5. TN UNSPECIFIED [Concomitant]
     Indication: B precursor type acute leukaemia
     Dosage: 28 ?G, UNK
     Route: 065
     Dates: start: 20200113, end: 20200209
  6. TN UNSPECIFIED [Concomitant]
     Indication: B precursor type acute leukaemia
     Dosage: 5 MG, UNK
     Route: 037
     Dates: start: 20200824, end: 20200824
  7. TN UNSPECIFIED [Concomitant]
     Indication: B precursor type acute leukaemia
     Dosage: 15 MG, UNK
     Route: 037
     Dates: start: 20200824, end: 20200824

REACTIONS (1)
  - Staphylococcal sepsis [Recovered/Resolved]

NARRATIVE: CASE EVENT DATE: 20200909
